FAERS Safety Report 23567531 (Version 1)
Quarter: 2024Q1

REPORT INFORMATION
  Report Type: Spontaneous
  Country: US (occurrence: US)
  Receive Date: 20240226
  Receipt Date: 20240226
  Transmission Date: 20240410
  Serious: No
  Sender: FDA-Public Use
  Company Number: US-Dermavant-000969

PATIENT
  Sex: Male

DRUGS (1)
  1. TAPINAROF [Suspect]
     Active Substance: TAPINAROF
     Indication: Pruritus
     Dosage: ONCE DAILY TO A SPOT ON HIS CHIN/BEARD AREA FOR ITCHING
     Route: 061
     Dates: start: 202312, end: 202312

REACTIONS (2)
  - Dermatitis contact [Recovered/Resolved]
  - Product use in unapproved indication [None]

NARRATIVE: CASE EVENT DATE: 20231201
